FAERS Safety Report 21185294 (Version 1)
Quarter: 2022Q3

REPORT INFORMATION
  Report Type: Spontaneous
  Country: CN (occurrence: CN)
  Receive Date: 20220808
  Receipt Date: 20220808
  Transmission Date: 20221026
  Serious: Yes (Other)
  Sender: FDA-Public Use
  Company Number: CN-009507513-2208CHN002995

PATIENT
  Age: 48 Year
  Sex: Male
  Weight: 75 kg

DRUGS (4)
  1. KEYTRUDA [Suspect]
     Active Substance: PEMBROLIZUMAB
     Indication: Drug therapy
     Dosage: 200 MG, ONCE, IV DRIP, D1
     Route: 041
     Dates: start: 20220707, end: 20220707
  2. NEDAPLATIN [Suspect]
     Active Substance: NEDAPLATIN
     Indication: Drug therapy
     Dosage: 50 MG, QD, IV DRIP
     Route: 041
     Dates: start: 20220707, end: 20220708
  3. NEDAPLATIN [Suspect]
     Active Substance: NEDAPLATIN
     Dosage: 40 MG, QD, IV DRIP
     Route: 041
     Dates: start: 20220709, end: 20220709
  4. GEMCITABINE HYDROCHLORIDE [Suspect]
     Active Substance: GEMCITABINE HYDROCHLORIDE
     Indication: Drug therapy
     Dosage: D1, D8, 1800 MG, ONCE, IV DRIP
     Route: 041
     Dates: start: 20220707, end: 20220707

REACTIONS (3)
  - Myelosuppression [Not Recovered/Not Resolved]
  - Nausea [Unknown]
  - Vomiting [Unknown]

NARRATIVE: CASE EVENT DATE: 20220711
